FAERS Safety Report 4348711-0 (Version None)
Quarter: 2004Q2

REPORT INFORMATION
  Report Type: 
  Country: None (occurrence: None)
  Receive Date: 20040427
  Receipt Date: 20040421
  Transmission Date: 20050107
  Serious: Yes (Hospitalization, Disabling)
  Sender: FDA-Public Use
  Company Number: US-MERCK-0404USA01979

PATIENT
  Age: 80 Year
  Sex: Male

DRUGS (6)
  1. [THERAPY UNSPECIFIED] [Concomitant]
     Route: 065
  2. ALBUTEROL [Concomitant]
     Route: 065
  3. ZITHROMAX [Concomitant]
     Route: 065
  4. DECADRON [Suspect]
     Indication: CHRONIC OBSTRUCTIVE AIRWAYS DISEASE
     Route: 048
  5. LOVENOX [Concomitant]
     Route: 065
  6. ZOSYN [Concomitant]
     Route: 065

REACTIONS (2)
  - AGITATION [None]
  - PSYCHIATRIC SYMPTOM [None]
